FAERS Safety Report 18300602 (Version 1)
Quarter: 2020Q3

REPORT INFORMATION
  Report Type: Spontaneous
  Country: US (occurrence: US)
  Receive Date: 20200923
  Receipt Date: 20200923
  Transmission Date: 20201103
  Serious: No
  Sender: FDA-Public Use
  Company Number: None

PATIENT
  Age: 36 Year
  Sex: Female
  Weight: 85.5 kg

DRUGS (5)
  1. EMGALITY [Suspect]
     Active Substance: GALCANEZUMAB-GNLM
     Indication: MIGRAINE
     Dates: start: 20180801
  2. ZONISIMIDE [Concomitant]
  3. EMGALITY [Concomitant]
     Active Substance: GALCANEZUMAB-GNLM
  4. CYMBALTA [Concomitant]
     Active Substance: DULOXETINE HYDROCHLORIDE
  5. BIOTIN [Concomitant]
     Active Substance: BIOTIN

REACTIONS (3)
  - Alopecia [None]
  - Fatigue [None]
  - Weight increased [None]
